FAERS Safety Report 6233025 (Version 2)
Quarter: 2013Q2

REPORT INFORMATION
  Report Type: Spontaneous
  Country: US (occurrence: None)
  Receive Date: 20061130
  Receipt Date: 20120508
  Transmission Date: 20140414
  Serious: Yes (Life-Threatening, Disabling)
  Sender: FDA-Public Use
  Company Number: 2005US001021

PATIENT
  Age: 62 Year
  Sex: Female
  Weight: 45 kg

DRUGS (6)
  1. ELIDEL [Suspect]
     Indication: DERMATITIS ATOPIC
     Dosage: UID/QD, TOPICAL
     Route: 061
     Dates: start: 20010101, end: 20030101
  2. ZOLOFT [Concomitant]
  3. PREMARIN [Concomitant]
  4. SYNTHROID [Concomitant]
  5. FOSAMAX [Concomitant]
  6. PROTOPIC [Suspect]
     Indication: DERMATITIS ATOPIC
     Dosage: UID/QD, TOPICAL
     Route: 061
     Dates: start: 20010205, end: 20030101

REACTIONS (8)
  - MYCOSIS FUNGOIDES [None]
  - APPLICATION SITE ERYTHEMA [None]
  - APPLICATION SITE WARMTH [None]
  - DRUG EFFECT DECREASED [None]
  - ALOPECIA [None]
  - DRY SKIN [None]
  - PRURITUS [None]
  - SKIN ATROPHY [None]
